FAERS Safety Report 13101271 (Version 7)
Quarter: 2018Q4

REPORT INFORMATION
  Report Type: Spontaneous
  Country: FR (occurrence: FR)
  Receive Date: 20170110
  Receipt Date: 20181211
  Transmission Date: 20190204
  Serious: Yes (Other)
  Sender: FDA-Public Use
  Company Number: FR-PFIZER INC-2017003343

PATIENT
  Age: 59 Year
  Sex: Female
  Weight: 44 kg

DRUGS (6)
  1. BACTRIM [Suspect]
     Active Substance: SULFAMETHOXAZOLE\TRIMETHOPRIM
     Dosage: 800 MG, CYCLIC
     Route: 048
     Dates: start: 20160915
  2. LORAMYC [Suspect]
     Active Substance: MICONAZOLE
     Indication: BONE MARROW TRANSPLANT
     Dosage: 50 MG, 1X/DAY
     Route: 048
     Dates: start: 20160915
  3. VFEND [Suspect]
     Active Substance: VORICONAZOLE
     Indication: BONE MARROW TRANSPLANT
     Dosage: 400 MG, 1X/DAY
     Route: 048
     Dates: start: 20160915
  4. AMOXICILLIN. [Suspect]
     Active Substance: AMOXICILLIN
     Dosage: 1500 MG, 1X/DAY
     Route: 048
     Dates: start: 20160915
  5. NEORAL [Suspect]
     Active Substance: CYCLOSPORINE
     Indication: BONE MARROW TRANSPLANT
     Dosage: 100 MG, 1X/DAY
     Route: 048
     Dates: start: 20160915
  6. URSOLVAN-200 [Suspect]
     Active Substance: URSODIOL
     Indication: ALLOGENIC BONE MARROW TRANSPLANTATION THERAPY
     Dosage: 300 MG, 1X/DAY
     Route: 048
     Dates: start: 20160915

REACTIONS (8)
  - Tremor [Not Recovered/Not Resolved]
  - Aphthous ulcer [Not Recovered/Not Resolved]
  - Weight decreased [Not Recovered/Not Resolved]
  - Cystitis haemorrhagic [Recovering/Resolving]
  - Product use in unapproved indication [Unknown]
  - Rash [Not Recovered/Not Resolved]
  - Graft versus host disease [Not Recovered/Not Resolved]
  - Sepsis [Not Recovered/Not Resolved]

NARRATIVE: CASE EVENT DATE: 20160915
